FAERS Safety Report 12247166 (Version 1)
Quarter: 2016Q2

REPORT INFORMATION
  Report Type: Spontaneous
  Country: US (occurrence: US)
  Receive Date: 20160407
  Receipt Date: 20160407
  Transmission Date: 20160815
  Serious: No
  Sender: FDA-Public Use
  Company Number: US-PRINSTON PHARMACEUTICAL INC.-2015PRN00013

PATIENT

DRUGS (1)
  1. BENAZEPRIL HCL TABLETS USP 40 MG [Suspect]
     Active Substance: BENAZEPRIL HYDROCHLORIDE

REACTIONS (1)
  - Hypersensitivity [Unknown]
